FAERS Safety Report 5091498-7 (Version None)
Quarter: 2006Q3

REPORT INFORMATION
  Report Type: 
  Country: None (occurrence: None)
  Receive Date: 20060829
  Receipt Date: 20060822
  Transmission Date: 20061208
  Serious: Yes (Hospitalization)
  Sender: FDA-Public Use
  Company Number: 2006CG01381

PATIENT
  Age: 67 Year
  Sex: Female

DRUGS (1)
  1. TENORMIN [Suspect]
     Route: 048
     Dates: start: 20060725, end: 20060727

REACTIONS (1)
  - URTICARIA [None]
